FAERS Safety Report 5354395-5 (Version None)
Quarter: 2007Q2

REPORT INFORMATION
  Report Type: 
  Country: None (occurrence: None)
  Receive Date: 20070612
  Receipt Date: 20070601
  Transmission Date: 20071010
  Serious: Yes (Other)
  Sender: FDA-Public Use
  Company Number: US-JNJFOC-20070601032

PATIENT
  Sex: Female
  Weight: 90.72 kg

DRUGS (12)
  1. TOPAMAX [Suspect]
     Indication: MIGRAINE PROPHYLAXIS
     Route: 048
  2. ACTOS [Concomitant]
     Indication: DIABETES MELLITUS
     Route: 048
  3. ALBUTEROL [Concomitant]
     Indication: ASTHMA
     Route: 055
  4. AMARYL [Concomitant]
     Indication: DIABETES MELLITUS
     Route: 048
  5. AZMACORT [Concomitant]
     Indication: ASTHMA
     Dosage: 2 PUFFS 4 TIMES/DAY
     Route: 055
  6. DIGOXIN [Concomitant]
     Route: 048
  7. DIOVAN [Concomitant]
  8. GLUCOPHAGE [Concomitant]
     Route: 048
  9. LASIX [Concomitant]
     Route: 048
  10. SPIRONOLACTONE [Concomitant]
     Route: 048
  11. TRICOR [Concomitant]
     Route: 048
  12. ZYRTEC [Concomitant]
     Route: 048

REACTIONS (2)
  - DEHYDRATION [None]
  - RENAL IMPAIRMENT [None]
